FAERS Safety Report 8016107-6 (Version None)
Quarter: 2011Q4

REPORT INFORMATION
  Report Type: 
  Country: None (occurrence: None)
  Receive Date: 20111228
  Receipt Date: 20111228
  Transmission Date: 20120403
  Serious: Yes (Hospitalization)
  Sender: FDA-Public Use
  Company Number: None

PATIENT
  Age: 77 Year
  Sex: Female
  Weight: 90.2658 kg

DRUGS (1)
  1. METRONIDAZOLE PLIVA INC. [Suspect]
     Dosage: 500 MG 3 TIMES/DAY  ; 250MG 3 TIMES/DAY
     Dates: start: 20111104

REACTIONS (4)
  - DECREASED APPETITE [None]
  - ASTHENIA [None]
  - ADVERSE DRUG REACTION [None]
  - DEHYDRATION [None]
